FAERS Safety Report 7538812-8 (Version None)
Quarter: 2011Q2

REPORT INFORMATION
  Report Type: 
  Country: None (occurrence: None)
  Receive Date: 20110610
  Receipt Date: 20091031
  Transmission Date: 20111010
  Serious: Yes (Other)
  Sender: FDA-Public Use
  Company Number: US-BAYER-200937846NA

PATIENT
  Age: 60 Year
  Sex: Female
  Weight: 73 kg

DRUGS (22)
  1. TRASYLOL [Suspect]
     Indication: CARDIAC OPERATION
     Dosage: 200 ML
     Route: 042
     Dates: start: 20040819, end: 20040819
  2. LANOXIN [Concomitant]
     Dosage: 0.125 MG, QD
     Route: 048
  3. KEFZOL [Concomitant]
     Dosage: 2 G, UNK
     Route: 042
     Dates: start: 20040819, end: 20040819
  4. HEPARIN [Concomitant]
     Dosage: 23000 U, UNK
     Route: 042
     Dates: start: 20040819, end: 20040819
  5. MACRODANTIN [Concomitant]
     Dosage: 50 MG, QD
     Route: 048
  6. BENADRYL [Concomitant]
     Dosage: 50 MG, UNK
     Route: 042
     Dates: start: 20040819, end: 20040819
  7. PROPOFOL [Concomitant]
     Dosage: UNK
     Route: 042
     Dates: start: 20040819, end: 20040819
  8. DOPAMINE HCL [Concomitant]
     Dosage: UNK
     Route: 042
     Dates: start: 20040819, end: 20040819
  9. TRASYLOL [Suspect]
     Indication: HIGH FREQUENCY ABLATION
     Dosage: 50ML/HOUR
     Route: 042
     Dates: start: 20040819, end: 20040819
  10. MIDAZOLAM [Concomitant]
     Dosage: 7 MG, UNK
     Route: 042
     Dates: start: 20040819, end: 20040819
  11. TRASYLOL [Suspect]
     Indication: MITRAL VALVE REPLACEMENT
     Dosage: 1 ML
     Route: 042
     Dates: start: 20040819, end: 20040819
  12. COREG [Concomitant]
     Dosage: 12.5 MG, QD
     Route: 048
  13. ALDACTONE [Concomitant]
     Dosage: 25 MG, QD
     Route: 048
  14. XANAX [Concomitant]
     Dosage: 0.25 MG, UNK
  15. PEPCID [Concomitant]
     Dosage: 20 MG, UNK
     Route: 042
  16. LIDOCAINE [Concomitant]
     Dosage: 200 MG, UNK
     Route: 042
     Dates: start: 20040819, end: 20040819
  17. FENTANYL [Concomitant]
     Dosage: 250 MG, UNK
     Route: 042
  18. PREMARIN [Concomitant]
     Dosage: 0.3 MG, QD
     Route: 048
  19. DEMADEX [Concomitant]
     Dosage: 20 MG, QD
     Route: 048
  20. LEVAQUIN [Concomitant]
     Dosage: 500 MG, QD
     Route: 048
  21. PROTAMINE SULFATE [Concomitant]
     Dosage: 500 MG, UNK
     Route: 042
     Dates: start: 20040819, end: 20040819
  22. RED BLOOD CELLS [Concomitant]
     Route: 042

REACTIONS (12)
  - ANXIETY [None]
  - FEAR [None]
  - INJURY [None]
  - ANHEDONIA [None]
  - RENAL INJURY [None]
  - EMOTIONAL DISTRESS [None]
  - RENAL FAILURE [None]
  - MULTI-ORGAN FAILURE [None]
  - RENAL IMPAIRMENT [None]
  - STRESS [None]
  - UNEVALUABLE EVENT [None]
  - PAIN [None]
